FAERS Safety Report 4786814-7 (Version None)
Quarter: 2005Q4

REPORT INFORMATION
  Report Type: 
  Country: None (occurrence: None)
  Receive Date: 20051004
  Receipt Date: 20050919
  Transmission Date: 20060501
  Serious: Yes (Other)
  Sender: FDA-Public Use
  Company Number: 2005AC01478

PATIENT
  Age: 62 Year
  Sex: Female

DRUGS (2)
  1. LIDOCAINE [Suspect]
     Indication: LOCAL ANAESTHESIA
     Route: 053
  2. EPINEPHRINE [Suspect]
     Indication: LOCAL ANAESTHESIA
     Route: 053

REACTIONS (5)
  - CONJUNCTIVAL OEDEMA [None]
  - EXOPHTHALMOS [None]
  - EYE MOVEMENT DISORDER [None]
  - OCULAR RETROBULBAR HAEMORRHAGE [None]
  - VISUAL ACUITY REDUCED [None]
